FAERS Safety Report 12348218 (Version 2)
Quarter: 2016Q4

REPORT INFORMATION
  Report Type: Report from Study
  Country: CO (occurrence: CO)
  Receive Date: 20160509
  Receipt Date: 20161128
  Transmission Date: 20170207
  Serious: Yes (Other)
  Sender: FDA-Public Use
  Company Number: CO-JNJFOC-20160506351

PATIENT
  Age: 86 Year
  Sex: Male
  Weight: 63 kg

DRUGS (2)
  1. ZYTIGA [Suspect]
     Active Substance: ABIRATERONE ACETATE
     Indication: PROSTATE CANCER
     Route: 048
     Dates: start: 20150525, end: 20160827
  2. PREDNISOLONE. [Concomitant]
     Active Substance: PREDNISOLONE
     Indication: PROSTATE CANCER
     Route: 048
     Dates: start: 20150525, end: 20160827

REACTIONS (2)
  - Prostatic specific antigen increased [Unknown]
  - Cementoplasty [Recovered/Resolved with Sequelae]

NARRATIVE: CASE EVENT DATE: 20151116
